FAERS Safety Report 25320496 (Version 2)
Quarter: 2025Q3

REPORT INFORMATION
  Report Type: Report from Study
  Country: JP (occurrence: JP)
  Receive Date: 20250515
  Receipt Date: 20250711
  Transmission Date: 20251020
  Serious: Yes (Death, Other)
  Sender: Unknown Manufacturer
  Company Number: JP-MTPC-MTPC2024-0019200

PATIENT
  Age: 61 Year
  Sex: Female

DRUGS (6)
  1. RADICAVA ORS [Suspect]
     Active Substance: EDARAVONE
     Indication: Amyotrophic lateral sclerosis
     Dosage: 105 MILLIGRAM, QD
     Route: 051
     Dates: start: 20240806, end: 20240819
  2. RADICAVA ORS [Suspect]
     Active Substance: EDARAVONE
     Indication: Amyotrophic lateral sclerosis
     Dosage: 105 MILLIGRAM, QD
     Route: 051
     Dates: start: 20240806, end: 20240819
  3. ELDECALCITOL [Suspect]
     Active Substance: ELDECALCITOL
     Dosage: 0.75 MICROGRAM, QD
     Route: 048
     Dates: end: 20240823
  4. AMBROXOL HYDROCHLORIDE [Concomitant]
     Active Substance: AMBROXOL HYDROCHLORIDE
     Indication: Amyotrophic lateral sclerosis
     Dosage: 30 MILLIGRAM, QD
     Route: 048
  5. MIYA-BM [Concomitant]
     Active Substance: CLOSTRIDIUM BUTYRICUM SPORES STRAIN M-55
     Indication: Prophylaxis
     Dosage: 3 GRAM, QD
     Route: 048
  6. RILUZOLE [Concomitant]
     Active Substance: RILUZOLE
     Indication: Amyotrophic lateral sclerosis
     Dosage: 100 MILLIGRAM, QD
     Route: 065

REACTIONS (3)
  - Hypercalcaemia [Recovered/Resolved]
  - Renal impairment [Recovered/Resolved]
  - Amyotrophic lateral sclerosis [Fatal]

NARRATIVE: CASE EVENT DATE: 20240823
